FAERS Safety Report 4847681-6 (Version None)
Quarter: 2005Q4

REPORT INFORMATION
  Report Type: 
  Country: None (occurrence: None)
  Receive Date: 20051205
  Receipt Date: 20051028
  Transmission Date: 20060501
  Serious: Yes (Hospitalization)
  Sender: FDA-Public Use
  Company Number: 2005BH002735

PATIENT
  Age: 44 Year
  Sex: Female

DRUGS (3)
  1. FORANE [Suspect]
     Indication: ANAESTHESIA
     Dosage: 0.5 PCT; ONCE; INH
     Route: 055
     Dates: start: 20051019, end: 20051019
  2. METHOTREXATE [Concomitant]
  3. PARACETAMOL [Concomitant]

REACTIONS (4)
  - ACTIVATED PARTIAL THROMBOPLASTIN TIME PROLONGED [None]
  - DIZZINESS [None]
  - HEPATIC FAILURE [None]
  - PROTHROMBIN TIME PROLONGED [None]
